FAERS Safety Report 9717890 (Version 2)
Quarter: 2013Q4

REPORT INFORMATION
  Report Type: Spontaneous
  Country: US (occurrence: None)
  Receive Date: 20131125
  Receipt Date: 20131209
  Transmission Date: 20140711
  Serious: Yes (Other)
  Sender: FDA-Public Use
  Company Number: 2013P1021050

PATIENT
  Age: 20 Year
  Sex: Female

DRUGS (1)
  1. MYORISAN [Suspect]
     Indication: ACNE
     Dates: start: 20130927, end: 20131111

REACTIONS (1)
  - Depressive symptom [None]
